FAERS Safety Report 18319869 (Version 2)
Quarter: 2020Q4

REPORT INFORMATION
  Report Type: Spontaneous
  Country: US (occurrence: US)
  Receive Date: 20200928
  Receipt Date: 20201229
  Transmission Date: 20210113
  Serious: Yes (Hospitalization, Other)
  Sender: FDA-Public Use
  Company Number: US-ASTRAZENECA-2020SF23317

PATIENT
  Age: 16248 Day
  Sex: Male
  Weight: 137.4 kg

DRUGS (101)
  1. SALINE [Concomitant]
     Active Substance: SODIUM CHLORIDE
  2. HYDRALAZINE [Concomitant]
     Active Substance: HYDRALAZINE HYDROCHLORIDE
  3. PHENERGAN [Concomitant]
     Active Substance: PROMETHAZINE HYDROCHLORIDE
  4. PHOSPHORUS [Concomitant]
     Active Substance: PHOSPHORUS
  5. SODIUM BIPHOSPHATE [Concomitant]
  6. MILK OF MAGNESIA [Concomitant]
     Active Substance: MAGNESIUM HYDROXIDE
  7. GUAIFENESIN. [Concomitant]
     Active Substance: GUAIFENESIN
  8. INSULIN [Concomitant]
     Active Substance: INSULIN NOS
  9. TOPIRAMATE. [Concomitant]
     Active Substance: TOPIRAMATE
  10. SINGULAIR [Concomitant]
     Active Substance: MONTELUKAST SODIUM
  11. ERYTHROMYCIN. [Concomitant]
     Active Substance: ERYTHROMYCIN
  12. TRIAMCINOLONE [Concomitant]
     Active Substance: TRIAMCINOLONE
  13. BYETTA [Concomitant]
     Active Substance: EXENATIDE
  14. DEXAMETHASONE. [Concomitant]
     Active Substance: DEXAMETHASONE
  15. LACTIC ACID. [Concomitant]
     Active Substance: LACTIC ACID
  16. COENZYME Q10 [Concomitant]
     Active Substance: DIETARY SUPPLEMENT\UBIDECARENONE
  17. POLICOSANOL [Concomitant]
  18. PREVNAR [Concomitant]
     Active Substance: PNEUMOCOCCAL 7-VALENT CONJUGATE VACCINE (DIPHTHERIA CRM197 PROTEIN)
  19. FARXIGA [Suspect]
     Active Substance: DAPAGLIFLOZIN PROPANEDIOL
     Indication: WEIGHT DECREASED
     Route: 048
     Dates: start: 201706
  20. DILTIAZEM. [Concomitant]
     Active Substance: DILTIAZEM
  21. NEURONTIN [Concomitant]
     Active Substance: GABAPENTIN
  22. HUMALOG [Concomitant]
     Active Substance: INSULIN LISPRO
  23. LEVAQUIN [Concomitant]
     Active Substance: LEVOFLOXACIN
  24. DIFLUCAN [Concomitant]
     Active Substance: FLUCONAZOLE
  25. PENICILLIN G [Concomitant]
     Active Substance: PENICILLIN G
  26. MULTI VITAMIN [Concomitant]
     Active Substance: VITAMINS
  27. NOVOLOG [Concomitant]
     Active Substance: INSULIN ASPART
  28. PRILOSEC [Concomitant]
     Active Substance: OMEPRAZOLE MAGNESIUM
  29. LOVENOX [Concomitant]
     Active Substance: ENOXAPARIN SODIUM
  30. NORCO [Concomitant]
     Active Substance: ACETAMINOPHEN\HYDROCODONE BITARTRATE
  31. LEVEMIR [Concomitant]
     Active Substance: INSULIN DETEMIR
  32. TYLENOL [Concomitant]
     Active Substance: ACETAMINOPHEN
  33. MAGNESIUM SULPHATE [Concomitant]
     Active Substance: MAGNESIUM SULFATE
  34. POTASSIUM BICARBONATE. [Concomitant]
     Active Substance: POTASSIUM BICARBONATE
  35. CITRIC ACID [Concomitant]
     Active Substance: CITRIC ACID MONOHYDRATE
  36. WHITE PETROLATUM-MINERAL OIL [Concomitant]
  37. SILDENAFIL. [Concomitant]
     Active Substance: SILDENAFIL
  38. PRAMIPEXOLE. [Concomitant]
     Active Substance: PRAMIPEXOLE
  39. HYDROCHLOROTHIAZIDE. [Concomitant]
     Active Substance: HYDROCHLOROTHIAZIDE
  40. CELECOXIB. [Concomitant]
     Active Substance: CELECOXIB
  41. INVOKANA [Concomitant]
     Active Substance: CANAGLIFLOZIN
  42. CARAFATE [Concomitant]
     Active Substance: SUCRALFATE
  43. METOPROLOL TARTRATE. [Concomitant]
     Active Substance: METOPROLOL TARTRATE
  44. CLONIDINE. [Concomitant]
     Active Substance: CLONIDINE
  45. POTASSIUM PHOSPHATE [Concomitant]
     Active Substance: POTASSIUM PHOSPHATE
  46. BUPROPION. [Concomitant]
     Active Substance: BUPROPION
  47. PROAIR HFA [Concomitant]
     Active Substance: ALBUTEROL SULFATE
  48. KEFLEX [Concomitant]
     Active Substance: CEPHALEXIN
  49. DIOVAN [Concomitant]
     Active Substance: VALSARTAN
  50. VANCOMYCIN [Concomitant]
     Active Substance: VANCOMYCIN
  51. ASPIRIN. [Concomitant]
     Active Substance: ASPIRIN
  52. TRAMADOL. [Concomitant]
     Active Substance: TRAMADOL
  53. FENTANYL. [Concomitant]
     Active Substance: FENTANYL
  54. DIPHENHYDRAMINE HYDROCHLORIDE. [Concomitant]
     Active Substance: DIPHENHYDRAMINE HYDROCHLORIDE
  55. DEXTROSE. [Concomitant]
     Active Substance: DEXTROSE
  56. GLUCAGON. [Concomitant]
     Active Substance: GLUCAGON
  57. AMBIEN [Concomitant]
     Active Substance: ZOLPIDEM TARTRATE
  58. PROPOFOL. [Concomitant]
     Active Substance: PROPOFOL
  59. FLAGYL [Concomitant]
     Active Substance: METRONIDAZOLE\METRONIDAZOLE HYDROCHLORIDE
  60. NOREPINEPHRINE BITARTRATE. [Concomitant]
     Active Substance: NOREPINEPHRINE BITARTRATE
  61. CHLORHEXIDINE GLUCONATE. [Concomitant]
     Active Substance: CHLORHEXIDINE GLUCONATE
  62. SERTRALINE [Concomitant]
     Active Substance: SERTRALINE HYDROCHLORIDE
  63. ESCITALOPRAM [Concomitant]
     Active Substance: ESCITALOPRAM OXALATE
  64. FARXIGA [Suspect]
     Active Substance: DAPAGLIFLOZIN PROPANEDIOL
     Indication: TYPE 2 DIABETES MELLITUS
     Route: 048
     Dates: start: 201706
  65. MORPHINE [Concomitant]
     Active Substance: MORPHINE
  66. IMDUR [Concomitant]
     Active Substance: ISOSORBIDE MONONITRATE
  67. CLARITIN [Concomitant]
     Active Substance: LORATADINE
  68. MIRALAX [Concomitant]
     Active Substance: POLYETHYLENE GLYCOL 3350
  69. SIMETHICONE (DIMETHICONE) [Concomitant]
     Active Substance: DIMETHICONE
  70. LINEZOLID. [Concomitant]
     Active Substance: LINEZOLID
  71. CHLORAHEXADINE [Concomitant]
     Active Substance: CHLORHEXIDINE
  72. FENOFIBRATE. [Concomitant]
     Active Substance: FENOFIBRATE
  73. RILUZOLE. [Concomitant]
     Active Substance: RILUZOLE
  74. DICYCLOMINE [Concomitant]
     Active Substance: DICYCLOMINE HYDROCHLORIDE
  75. FOLIC ACID. [Concomitant]
     Active Substance: FOLIC ACID
  76. VITAMIN D [Concomitant]
     Active Substance: VITAMIN D NOS
  77. VICTOZA [Concomitant]
     Active Substance: LIRAGLUTIDE
  78. ASTAXANTHIN [Concomitant]
     Active Substance: ASTAXANTHIN
  79. FARXIGA [Suspect]
     Active Substance: DAPAGLIFLOZIN PROPANEDIOL
     Indication: BLOOD PRESSURE DECREASED
     Route: 048
     Dates: start: 201706
  80. ZOSYN [Concomitant]
     Active Substance: PIPERACILLIN SODIUM\TAZOBACTAM SODIUM
  81. HEPARIN [Concomitant]
     Active Substance: HEPARIN SODIUM
  82. CHLORASEPTIC LIQUID [Concomitant]
  83. MAGNESIUM OXIDE. [Concomitant]
     Active Substance: MAGNESIUM OXIDE
  84. PEPCID [Concomitant]
     Active Substance: FAMOTIDINE
  85. CLEOCIN [Concomitant]
     Active Substance: CLINDAMYCIN PHOSPHATE
  86. ZANTAC [Concomitant]
     Active Substance: RANITIDINE HYDROCHLORIDE
  87. MELOXICAM. [Concomitant]
     Active Substance: MELOXICAM
  88. HYDROCODONE [Concomitant]
     Active Substance: HYDROCODONE
  89. ACYCLOVIR. [Concomitant]
     Active Substance: ACYCLOVIR
  90. WARFARIN SODIUM. [Concomitant]
     Active Substance: WARFARIN SODIUM
  91. AMLODIPINE BESYLATE. [Concomitant]
     Active Substance: AMLODIPINE BESYLATE
  92. NOREPINEPHRINE. [Concomitant]
     Active Substance: NOREPINEPHRINE
  93. PANTOPRAZOLE [Concomitant]
     Active Substance: PANTOPRAZOLE
  94. MORPHINE SULPHATE [Concomitant]
     Active Substance: MORPHINE SULFATE
  95. DEXTRAN/ HYDROXYPROPYL METHYLCELLUL [Concomitant]
  96. ZOFRAN [Concomitant]
     Active Substance: ONDANSETRON HYDROCHLORIDE
  97. BACTRIM [Concomitant]
     Active Substance: SULFAMETHOXAZOLE\TRIMETHOPRIM
  98. HYDROMORPHONE HYDROCHLORIDE. [Concomitant]
     Active Substance: HYDROMORPHONE HYDROCHLORIDE
  99. AZELASTINE. [Concomitant]
     Active Substance: AZELASTINE HYDROCHLORIDE
  100. REPAGLINIDE. [Concomitant]
     Active Substance: REPAGLINIDE
  101. NIZORAL [Concomitant]
     Active Substance: KETOCONAZOLE

REACTIONS (5)
  - Necrotising fasciitis [Unknown]
  - Sepsis [Unknown]
  - Scrotal abscess [Unknown]
  - Fournier^s gangrene [Unknown]
  - Scrotal cellulitis [Unknown]

NARRATIVE: CASE EVENT DATE: 20170623
